FAERS Safety Report 9857889 (Version 2)
Quarter: 2014Q1

REPORT INFORMATION
  Report Type: Report from Study
  Country: CA (occurrence: CA)
  Receive Date: 20140131
  Receipt Date: 20140205
  Transmission Date: 20141002
  Serious: Yes (Other)
  Sender: FDA-Public Use
  Company Number: CA-ROCHE-1341669

PATIENT
  Sex: Female
  Weight: 99.8 kg

DRUGS (9)
  1. ACTEMRA [Suspect]
     Indication: RHEUMATOID ARTHRITIS
     Route: 042
     Dates: start: 20101105
  2. ACTEMRA [Suspect]
     Route: 042
     Dates: start: 20101130
  3. CELLCEPT [Suspect]
     Indication: PRODUCT USED FOR UNKNOWN INDICATION
     Route: 065
  4. PREDNISONE [Concomitant]
  5. OMEPRAZOLE [Concomitant]
  6. LYRICA [Concomitant]
  7. ACTONEL [Concomitant]
  8. AMITRIPTYLINE [Concomitant]
     Route: 065
  9. OXYCONTIN [Concomitant]

REACTIONS (3)
  - Diabetes mellitus [Not Recovered/Not Resolved]
  - Hypertension [Not Recovered/Not Resolved]
  - Drug ineffective [Unknown]
